FAERS Safety Report 4867094-0 (Version None)
Quarter: 2005Q4

REPORT INFORMATION
  Report Type: 
  Country: None (occurrence: None)
  Receive Date: 20051225
  Receipt Date: 20051208
  Transmission Date: 20060501
  Serious: Yes (Death, Hospitalization)
  Sender: FDA-Public Use
  Company Number: HQWYE154921OCT05

PATIENT
  Age: 33 Year
  Sex: Female
  Weight: 97.61 kg

DRUGS (13)
  1. ZOSYN [Suspect]
     Indication: PSEUDOMONAS INFECTION
     Dosage: 3.376 G 1X PER 6 HR, INTRAVEOUS
     Route: 042
     Dates: start: 20050901, end: 20051001
  2. NORVASC [Concomitant]
  3. COLACE (DOCUSATE SODIUM) [Concomitant]
  4. CORTAB (DIPYRIDAMOLE) [Concomitant]
  5. BACTRIM [Concomitant]
  6. PROTONIX [Concomitant]
  7. TUMS (CALCIUM CARBONATE/MAGNESIUM CARBONATE/MAGNESIUM TRISILICATE) [Concomitant]
  8. FERROUS SULFATE TAB [Concomitant]
  9. NYSTATIN [Concomitant]
  10. LOTRISONE [Concomitant]
  11. GLUCOPHAGE [Concomitant]
  12. QUINAPRIL HCL [Concomitant]
  13. RIFAMPICIN [Concomitant]

REACTIONS (3)
  - RASH [None]
  - SHOCK [None]
  - STEVENS-JOHNSON SYNDROME [None]
